FAERS Safety Report 15438216 (Version 2)
Quarter: 2018Q4

REPORT INFORMATION
  Report Type: Other
  Country: PL (occurrence: PL)
  Receive Date: 20180928
  Receipt Date: 20181220
  Transmission Date: 20190204
  Serious: Yes (Hospitalization, Other)
  Sender: FDA-Public Use
  Company Number: PL-APOTEX-2018AP021175

PATIENT
  Age: 75 Year
  Sex: Male

DRUGS (13)
  1. ALLOPURINOL. [Interacting]
     Active Substance: ALLOPURINOL
     Dosage: 200 MG 200 MG, QD
     Route: 065
  2. FUROSEMIDE. [Concomitant]
     Active Substance: FUROSEMIDE
     Indication: PRODUCT USED FOR UNKNOWN INDICATION
     Dosage: 40 MG, QD
     Route: 065
  3. CARVEDILOL. [Interacting]
     Active Substance: CARVEDILOL
     Indication: SUPRAVENTRICULAR TACHYCARDIA
     Dosage: 6.25 MG, QD
     Route: 065
     Dates: start: 200504
  4. ATORVASTATIN [Suspect]
     Active Substance: ATORVASTATIN
     Indication: PRODUCT USED FOR UNKNOWN INDICATION
     Dosage: 20 MG DAILY 20 MG, QD
     Route: 065
  5. ALLOPURINOL. [Interacting]
     Active Substance: ALLOPURINOL
     Indication: TACHYCARDIA PAROXYSMAL
     Dosage: UNK
     Route: 065
  6. CILAZAPRIL [Interacting]
     Active Substance: CILAZAPRIL ANHYDROUS
     Indication: TACHYCARDIA PAROXYSMAL
     Dosage: 1 MG, QD
     Route: 065
  7. OPACORDEN [Suspect]
     Active Substance: AMIODARONE HYDROCHLORIDE
     Indication: SUPRAVENTRICULAR TACHYCARDIA
     Dosage: 200 MG, QD
     Route: 065
     Dates: end: 200506
  8. NEO RECORMON [Concomitant]
     Active Substance: ERYTHROPOIETIN
     Dosage: 1000 DF (U), Q.WK.
     Route: 058
  9. ATORVASTATIN [Concomitant]
     Active Substance: ATORVASTATIN
     Indication: PRODUCT USED FOR UNKNOWN INDICATION
     Dosage: 20 MG, QD
     Route: 065
  10. ACETYLSALICYLIC ACID [Concomitant]
     Active Substance: ASPIRIN
     Indication: PRODUCT USED FOR UNKNOWN INDICATION
     Dosage: 75 MG, QD (75 MG DAILY)
     Route: 065
  11. AMLODIPINE [Suspect]
     Active Substance: AMLODIPINE BESYLATE
     Indication: TACHYCARDIA PAROXYSMAL
     Dosage: UNK
     Route: 065
  12. AMLODIPINE [Interacting]
     Active Substance: AMLODIPINE BESYLATE
     Dosage: 5 MG DAILY 5 MG, QD
     Route: 065
  13. NEO RECORMON [Concomitant]
     Active Substance: ERYTHROPOIETIN
     Indication: TACHYCARDIA PAROXYSMAL
     Dosage: 1000 DF (U), Q.WK.
     Route: 065

REACTIONS (8)
  - Bradycardia [Recovered/Resolved]
  - Rebound tachycardia [Recovered/Resolved]
  - Tachycardia [Recovered/Resolved]
  - Supraventricular tachycardia [Recovered/Resolved]
  - Hypertension [Unknown]
  - Disease progression [Unknown]
  - Chronic kidney disease [Unknown]
  - Drug interaction [Unknown]

NARRATIVE: CASE EVENT DATE: 2005
